FAERS Safety Report 12663076 (Version 2)
Quarter: 2016Q3

REPORT INFORMATION
  Report Type: Spontaneous
  Country: US (occurrence: US)
  Receive Date: 20160818
  Receipt Date: 20160915
  Transmission Date: 20161109
  Serious: Yes (Other)
  Sender: FDA-Public Use
  Company Number: US-DRREDDYS-USA/USA/16/0082335

PATIENT
  Sex: Male

DRUGS (2)
  1. ZENATANE [Suspect]
     Active Substance: ISOTRETINOIN
     Indication: ACNE
     Route: 048
     Dates: start: 201603
  2. ZENATANE [Suspect]
     Active Substance: ISOTRETINOIN
     Route: 048
     Dates: start: 20160729

REACTIONS (1)
  - Urinary tract infection [Unknown]
